FAERS Safety Report 9376585 (Version 1)
Quarter: 2013Q3

REPORT INFORMATION
  Report Type: Spontaneous
  Country: US (occurrence: US)
  Receive Date: 20130701
  Receipt Date: 20130701
  Transmission Date: 20140515
  Serious: Yes (Hospitalization)
  Sender: FDA-Public Use
  Company Number: US-BIOGENIDEC-2013BI057326

PATIENT
  Age: 32 Year
  Sex: Female

DRUGS (4)
  1. AVONEX [Suspect]
     Indication: MULTIPLE SCLEROSIS
     Route: 030
     Dates: start: 20130113
  2. MEDICATIONS (NOS) [Concomitant]
     Indication: URINARY TRACT INFECTION
  3. MEDICATIONS (NOS) [Concomitant]
     Indication: NEPHROLITHIASIS
  4. MEDICATIONS (NOS) [Concomitant]
     Indication: KIDNEY INFECTION

REACTIONS (3)
  - Urinary tract infection [Not Recovered/Not Resolved]
  - Nephrolithiasis [Not Recovered/Not Resolved]
  - Kidney infection [Not Recovered/Not Resolved]
